FAERS Safety Report 5504270-8 (Version None)
Quarter: 2007Q4

REPORT INFORMATION
  Report Type: 
  Country: None (occurrence: None)
  Receive Date: 20071029
  Receipt Date: 20071018
  Transmission Date: 20080405
  Serious: Yes (Hospitalization, Disabling)
  Sender: FDA-Public Use
  Company Number: 2007AP001177

PATIENT
  Age: 28 Year
  Sex: Female

DRUGS (3)
  1. PAROXETINE HCL [Suspect]
     Indication: DEPRESSIVE SYMPTOM
     Dosage: 20 MG,PO;QD
     Route: 048
     Dates: start: 20070828, end: 20070914
  2. DIAZEPAM [Concomitant]
  3. ORAL CONTRACEPTIVE NOS (ORAL CONTRACEPTIVE NOS) [Concomitant]

REACTIONS (15)
  - AGITATION [None]
  - ANXIETY [None]
  - CHILLS [None]
  - CONFUSIONAL STATE [None]
  - EYE MOVEMENT DISORDER [None]
  - FLUSHING [None]
  - HALLUCINATION [None]
  - HYPERACUSIS [None]
  - HYPERHIDROSIS [None]
  - HYPERREFLEXIA [None]
  - LOSS OF CONSCIOUSNESS [None]
  - MYOCLONUS [None]
  - PHOTOPHOBIA [None]
  - TREMOR [None]
  - VISUAL DISTURBANCE [None]
